FAERS Safety Report 6509342-7 (Version None)
Quarter: 2009Q4

REPORT INFORMATION
  Report Type: 
  Country: None (occurrence: None)
  Receive Date: 20091218
  Receipt Date: 20091218
  Transmission Date: 20100525
  Serious: No
  Sender: FDA-Public Use
  Company Number: None

PATIENT
  Age: 76 Year
  Sex: Female
  Weight: 81.6475 kg

DRUGS (1)
  1. ARICEPT [Suspect]
     Indication: VASCULAR PARKINSONISM
     Dosage: I TABLET DAILY AT BEDTIME
     Dates: start: 20091208, end: 20091216

REACTIONS (4)
  - DIARRHOEA [None]
  - INFLUENZA [None]
  - NAUSEA [None]
  - VOMITING [None]
